FAERS Safety Report 6842953-8 (Version None)
Quarter: 2010Q3

REPORT INFORMATION
  Report Type: 
  Country: None (occurrence: None)
  Receive Date: 20100714
  Receipt Date: 20070813
  Transmission Date: 20110219
  Serious: No
  Sender: FDA-Public Use
  Company Number: US-PFIZER INC-2007066365

PATIENT
  Sex: Female
  Weight: 68.181 kg

DRUGS (2)
  1. CHANTIX [Suspect]
     Indication: SMOKING CESSATION THERAPY
     Dates: start: 20070804
  2. BENICAR [Concomitant]

REACTIONS (3)
  - DYSGEUSIA [None]
  - FEELING ABNORMAL [None]
  - NAUSEA [None]
